APPROVED DRUG PRODUCT: ARESTIN
Active Ingredient: MINOCYCLINE HYDROCHLORIDE
Strength: EQ 1MG BASE
Dosage Form/Route: POWDER, EXTENDED RELEASE;DENTAL
Application: N050781 | Product #001
Applicant: ORAPHARMA INC
Approved: Feb 16, 2001 | RLD: Yes | RS: Yes | Type: RX